FAERS Safety Report 16487083 (Version 1)
Quarter: 2019Q2

REPORT INFORMATION
  Report Type: Spontaneous
  Country: US (occurrence: US)
  Receive Date: 20190517
  Receipt Date: 20190517
  Transmission Date: 20190711
  Serious: Yes (Hospitalization)
  Sender: FDA-Public Use
  Company Number: None

PATIENT
  Age: 62 Year
  Sex: Female
  Weight: 87.4 kg

DRUGS (10)
  1. PACLITAXEL 80MG/M2, 60MGM2 [Suspect]
     Active Substance: PACLITAXEL
     Dosage: ?          OTHER STRENGTH:80MG/M2, 60MGM2;?
     Route: 042
     Dates: start: 20190329
  2. PACLITAXEL 80MG/M2, 60MGM2 [Suspect]
     Active Substance: PACLITAXEL
     Dosage: ?          OTHER STRENGTH:80MG/M2, 60MGM2;?
     Route: 042
     Dates: start: 20190412, end: 20190426
  3. PACLITAXEL 80MG/M2, 60MGM2 [Suspect]
     Active Substance: PACLITAXEL
     Dosage: ?          OTHER STRENGTH:80MG/M2, 60MGM2;?
  4. CARBOPLATIN AUC 2, AUC 1.5 [Suspect]
     Active Substance: CARBOPLATIN
     Route: 042
     Dates: start: 20190125, end: 20190322
  5. CARBOPLATIN AUC 2, AUC 1.5 [Suspect]
     Active Substance: CARBOPLATIN
     Route: 042
     Dates: start: 20190329
  6. TRASTUZUMAB. [Concomitant]
     Active Substance: TRASTUZUMAB
  7. PACLITAXEL 80MG/M2, 60MGM2 [Suspect]
     Active Substance: PACLITAXEL
     Indication: BREAST CANCER
     Dosage: ?          OTHER STRENGTH:80MG/M2, 60MGM2;?
     Route: 042
     Dates: start: 20190125, end: 20190426
  8. CARBOPLATIN AUC 2, AUC 1.5 [Suspect]
     Active Substance: CARBOPLATIN
     Indication: BREAST CANCER
     Route: 042
     Dates: start: 20190125, end: 20190426
  9. PERTUZUMAB. [Concomitant]
     Active Substance: PERTUZUMAB
  10. CARBOPLATIN AUC 2, AUC 1.5 [Suspect]
     Active Substance: CARBOPLATIN
     Route: 042
     Dates: start: 20190412, end: 20190426

REACTIONS (7)
  - Anaemia [None]
  - White blood cell count decreased [None]
  - Catheter site cellulitis [None]
  - Catheter site erythema [None]
  - Catheter site discharge [None]
  - Pain in extremity [None]
  - Skin infection [None]

NARRATIVE: CASE EVENT DATE: 20190512
